FAERS Safety Report 9162214 (Version 1)
Quarter: 2013Q1

REPORT INFORMATION
  Report Type: Spontaneous
  Country: US (occurrence: None)
  Receive Date: 20130222
  Receipt Date: 20130222
  Transmission Date: 20140127
  Serious: Yes (Other)
  Sender: FDA-Public Use
  Company Number: ACO_21740_2011

PATIENT
  Age: 46 Year
  Sex: Male
  Weight: 77.1 kg

DRUGS (3)
  1. TYSABRI [Suspect]
     Indication: MULTIPLE SCLEROSIS
     Dosage: EVERY 12 HOURS
     Route: 048
     Dates: start: 20110128, end: 20110130
  2. TYSABRI [Suspect]
     Indication: GAIT DISTURBANCE
     Dosage: EVERY 12 HOURS
     Route: 048
     Dates: start: 20110128, end: 20110130
  3. GILENYA [Concomitant]

REACTIONS (11)
  - Convulsion [None]
  - Viral infection [None]
  - Gait disturbance [None]
  - Lower respiratory tract infection [None]
  - Urinary retention [None]
  - Inappropriate schedule of drug administration [None]
  - Asthenia [None]
  - Muscle spasms [None]
  - Feeling cold [None]
  - Chills [None]
  - Tremor [None]
